FAERS Safety Report 19313777 (Version 1)
Quarter: 2021Q2

REPORT INFORMATION
  Report Type: Spontaneous
  Country: US (occurrence: US)
  Receive Date: 20210527
  Receipt Date: 20210527
  Transmission Date: 20210717
  Serious: Yes (Disabling)
  Sender: FDA-Public Use
  Company Number: None

PATIENT
  Age: 25 Year
  Sex: Female
  Weight: 49.5 kg

DRUGS (4)
  1. PROBIOTIC TEA [Concomitant]
  2. YOGURT [Concomitant]
  3. GUMMY MULTIVITAMINS [Concomitant]
  4. LEVAQUIN [Suspect]
     Active Substance: LEVOFLOXACIN
     Indication: CELLULITIS
     Dosage: ?          QUANTITY:1 TABLET(S);OTHER FREQUENCY:GIVEN ONE PILL IN;?
     Route: 048
     Dates: start: 20210518, end: 20210518

REACTIONS (4)
  - Muscle spasms [None]
  - Hypoaesthesia [None]
  - Paraesthesia [None]
  - Panic attack [None]

NARRATIVE: CASE EVENT DATE: 20210518
